FAERS Safety Report 8422214-6 (Version None)
Quarter: 2012Q2

REPORT INFORMATION
  Report Type: 
  Country: None (occurrence: None)
  Receive Date: 20120323
  Receipt Date: 20110221
  Transmission Date: 20120825
  Serious: Yes (Hospitalization)
  Sender: FDA-Public Use
  Company Number: 163-21880-11023140

PATIENT
  Age: 56 Year
  Sex: Female

DRUGS (8)
  1. METAXALONE [Concomitant]
  2. LABETALOL HCL [Concomitant]
  3. HYDRALAZINE HCL [Concomitant]
  4. REVLIMID [Suspect]
     Indication: MULTIPLE MYELOMA
     Dosage: 25 MG, DAILY FOR 21 DAYS, PO, 25 MG, DAILY FOR 21 DAYS, PO
     Route: 048
     Dates: start: 20110120, end: 20110208
  5. REVLIMID [Suspect]
     Indication: MULTIPLE MYELOMA
     Dosage: 25 MG, DAILY FOR 21 DAYS, PO, 25 MG, DAILY FOR 21 DAYS, PO
     Route: 048
     Dates: start: 20110223
  6. AMLODIPINE [Concomitant]
  7. HYDROCODONE BITARTRATE [Concomitant]
  8. LISINOPRIL [Concomitant]

REACTIONS (1)
  - PNEUMONIA [None]
